FAERS Safety Report 4357968-1 (Version None)
Quarter: 2004Q2

REPORT INFORMATION
  Report Type: 
  Country: None (occurrence: None)
  Receive Date: 20040510
  Receipt Date: 20040503
  Transmission Date: 20050107
  Serious: Yes (Hospitalization, Other)
  Sender: FDA-Public Use
  Company Number: 2004-01891

PATIENT
  Age: 55 Year
  Sex: Female
  Weight: 136.1 kg

DRUGS (4)
  1. FERRLECIT [Suspect]
     Indication: ANAEMIA
     Dosage: INTRAVENUS; 125 MG, SINGLE, INTRAVENOUS
     Route: 042
     Dates: start: 20040111, end: 20040111
  2. FERRLECIT [Suspect]
     Indication: ANAEMIA
     Dosage: INTRAVENUS; 125 MG, SINGLE, INTRAVENOUS
     Route: 042
     Dates: start: 20040112, end: 20040112
  3. EPOGEN [Concomitant]
  4. INSULIN [Concomitant]

REACTIONS (8)
  - CHILLS [None]
  - INJECTION SITE ERYTHEMA [None]
  - INJECTION SITE PAIN [None]
  - INJECTION SITE REACTION [None]
  - INJECTION SITE SWELLING [None]
  - KLEBSIELLA INFECTION [None]
  - NECROSIS [None]
  - VASCULITIS [None]
